FAERS Safety Report 14912511 (Version 3)
Quarter: 2019Q1

REPORT INFORMATION
  Report Type: Report from Study
  Country: GB (occurrence: GB)
  Receive Date: 20180518
  Receipt Date: 20190328
  Transmission Date: 20190417
  Serious: Yes (Hospitalization)
  Sender: FDA-Public Use
  Company Number: GB-ACCORD-067081

PATIENT
  Age: 60 Year
  Sex: Female
  Weight: 52.3 kg

DRUGS (17)
  1. ZOLEDRONIC ACID [Concomitant]
     Active Substance: ZOLEDRONIC ACID
     Dosage: UNK
  2. METHOTREXATE/METHOTREXATE SODIUM [Concomitant]
     Indication: PLASMA CELL MYELOMA
     Dosage: 12.5 MG, Q2WEEKS, ALSO RECEIVED UNK DOSE ADDITIONALLY
     Route: 042
     Dates: start: 20171115, end: 20171129
  3. TINZAPARIN/TINZAPARIN SODIUM [Concomitant]
     Indication: THROMBOSIS PROPHYLAXIS
     Dosage: UNK
  4. REVLIMID [Suspect]
     Active Substance: LENALIDOMIDE
     Indication: PLASMA CELL MYELOMA
     Dosage: 15 MG, UNK, ALSO RECEIVED 25 MG ON UNK DATE ORALLY
     Route: 048
     Dates: start: 20170511, end: 20171019
  5. FILGRASTIM [Concomitant]
     Active Substance: FILGRASTIM
     Dosage: UNK
  6. VELCADE [Concomitant]
     Active Substance: BORTEZOMIB
     Indication: PLASMA CELL MYELOMA
     Dosage: 2 MG, UNK, ALSO RECEIVED 2 MG ON UNK DATE
     Route: 058
     Dates: start: 20171125
  7. CYTOXAN [Suspect]
     Active Substance: CYCLOPHOSPHAMIDE
     Indication: PLASMA CELL MYELOMA
     Dosage: 600 MG, QD
     Route: 042
     Dates: start: 20171108
  8. ETOPOSIDE. [Suspect]
     Active Substance: ETOPOSIDE
     Indication: PLASMA CELL MYELOMA
     Dosage: 60 MG, QD
     Route: 042
     Dates: start: 20171108
  9. ACETYLSALICYLIC ACID [Concomitant]
     Active Substance: ASPIRIN
     Indication: THROMBOSIS PROPHYLAXIS
     Dosage: UNK
  10. HYDROCORTISONE. [Concomitant]
     Active Substance: HYDROCORTISONE
     Indication: PLASMA CELL MYELOMA
     Dosage: ALSO RECEIVED 25 MG FROM 15-NOV-2017 TO 21-DEC-2017
     Dates: start: 20171115, end: 20171221
  11. CYTARABINE/CYTARABINE HYDROCHLORIDE/CYTARABINE OCFOSFATE [Concomitant]
     Indication: PLASMA CELL MYELOMA
     Dosage: 50 MG, Q2WEEKS,21-DEC-2017 FPR 37 DAYS
     Route: 042
     Dates: start: 20171115, end: 20171129
  12. IXAZOMIB [Suspect]
     Active Substance: IXAZOMIB
     Indication: PLASMA CELL MYELOMA
     Dosage: 3 MG, UNK,2 MG FOR 144 DAYS
     Route: 048
     Dates: start: 20170706, end: 20170724
  13. PLATINOL [Suspect]
     Active Substance: CISPLATIN
     Indication: PLASMA CELL MYELOMA
     Dosage: 15 MG, QD
     Route: 042
     Dates: start: 20171108
  14. HEPARIN [Concomitant]
     Active Substance: HEPARIN SODIUM
     Indication: THROMBOSIS PROPHYLAXIS
  15. DOXORUBICIN [Suspect]
     Active Substance: DOXORUBICIN
     Indication: PLASMA CELL MYELOMA
     Dosage: 15 MG, QD
     Route: 042
     Dates: start: 20171108
  16. DEXAMETHASONE. [Suspect]
     Active Substance: DEXAMETHASONE
     Indication: PLASMA CELL MYELOMA
     Dosage: ALSO RECEIVED 20 MG FROM 13-APR-2017, ALSO RECEIVED 40 MG ADDITIONALLY
     Route: 048
     Dates: start: 20170320, end: 20171019
  17. DECADRON [Suspect]
     Active Substance: DEXAMETHASONE
     Indication: PLASMA CELL MYELOMA
     Dosage: 40 MG, 1/WEEK
     Dates: start: 20170320

REACTIONS (3)
  - Off label use [Unknown]
  - Febrile neutropenia [Recovered/Resolved]
  - Diarrhoea haemorrhagic [Recovered/Resolved]

NARRATIVE: CASE EVENT DATE: 20170728
